FAERS Safety Report 25459426 (Version 1)
Quarter: 2025Q2

REPORT INFORMATION
  Report Type: Spontaneous
  Country: GN (occurrence: GN)
  Receive Date: 20250620
  Receipt Date: 20250620
  Transmission Date: 20250716
  Serious: Yes (Death, Other)
  Sender: NOVARTIS
  Company Number: GN-002147023-NVSC2025GN098712

PATIENT
  Age: 20 Year
  Sex: Female

DRUGS (1)
  1. GLIVEC [Suspect]
     Active Substance: IMATINIB MESYLATE
     Indication: Chronic myeloid leukaemia
     Route: 065

REACTIONS (2)
  - Pulmonary tuberculosis [Fatal]
  - Toxicity to various agents [Fatal]

NARRATIVE: CASE EVENT DATE: 20250201
